FAERS Safety Report 7602016-0 (Version None)
Quarter: 2011Q2

REPORT INFORMATION
  Report Type: 
  Country: None (occurrence: None)
  Receive Date: 20110630
  Receipt Date: 20100928
  Transmission Date: 20111010
  Serious: Yes (Hospitalization)
  Sender: FDA-Public Use
  Company Number: 2010026534

PATIENT
  Sex: Female

DRUGS (8)
  1. NIFEDICAL XL (NIFEDIPINE) [Concomitant]
  2. IBUPROFEN [Concomitant]
  3. CARIMUNE NF [Suspect]
     Indication: MULTIPLE SCLEROSIS
     Dosage: SEE IMAGE
     Route: 042
     Dates: start: 20060201, end: 20100908
  4. BETASERON [Concomitant]
  5. EYE DROPS (TETRYZOLINE HYDROCHLORIDE) [Concomitant]
  6. CLONAZEPAM [Concomitant]
  7. CARIMUNE NF [Suspect]
  8. LOPRESSOR [Concomitant]

REACTIONS (2)
  - MYOCARDIAL INFARCTION [None]
  - CHEST PAIN [None]
